FAERS Safety Report 4528651-4 (Version None)
Quarter: 2004Q4

REPORT INFORMATION
  Report Type: 
  Country: None (occurrence: None)
  Receive Date: 20041216
  Receipt Date: 20041207
  Transmission Date: 20050328
  Serious: Yes (Hospitalization)
  Sender: FDA-Public Use
  Company Number: US-JNJFOC-20041005574

PATIENT
  Sex: Female

DRUGS (16)
  1. NATRECOR [Suspect]
     Dosage: 2 UG/KD BOLUS FOLLOWED BY 0.01 UG/KG/MINUTE AS INFUSION OVER FOUR HOURS
     Route: 042
  2. LASIX [Concomitant]
  3. NORVASC [Concomitant]
  4. FOLGARD [Concomitant]
  5. ASPIRIN [Concomitant]
  6. AVAPRO [Concomitant]
  7. PRAVACHOL [Concomitant]
  8. CLONAZEPAM [Concomitant]
  9. MULTI-VITAMINS [Concomitant]
  10. MULTI-VITAMINS [Concomitant]
  11. MULTI-VITAMINS [Concomitant]
  12. MULTI-VITAMINS [Concomitant]
  13. MULTI-VITAMINS [Concomitant]
  14. MULTI-VITAMINS [Concomitant]
  15. MULTI-VITAMINS [Concomitant]
  16. MULTI-VITAMINS [Concomitant]

REACTIONS (4)
  - ABDOMINAL DISCOMFORT [None]
  - GASTROENTERITIS [None]
  - NAUSEA [None]
  - VOMITING [None]
